FAERS Safety Report 6712978-1 (Version None)
Quarter: 2010Q2

REPORT INFORMATION
  Report Type: 
  Country: None (occurrence: None)
  Receive Date: 20100506
  Receipt Date: 20100503
  Transmission Date: 20101027
  Serious: Yes (Hospitalization)
  Sender: FDA-Public Use
  Company Number: PR-BRISTOL-MYERS SQUIBB COMPANY-15089261

PATIENT
  Age: 74 Year
  Sex: Male
  Weight: 79 kg

DRUGS (7)
  1. COUMADIN [Suspect]
     Indication: ATRIAL FIBRILLATION
     Dosage: 1 DF=2MG 2TAB ON SUN,WED+FRI;1 TAB MON,TUE,THUR,SAT;RESTART:02MAY10, REDUCED BY 1 TABLET/WK LAST MON
     Dates: start: 19950101
  2. VERAPAMIL [Concomitant]
     Dosage: 1 DF = 1 TAB
     Route: 048
     Dates: start: 19950101
  3. ZOCOR [Concomitant]
     Dosage: AT BED TIME
     Route: 048
  4. ATIVAN [Concomitant]
     Dosage: AT BEDTIME
     Route: 048
     Dates: start: 19950101
  5. RAMIPRIL [Concomitant]
     Dosage: AT NIGHT
     Route: 048
     Dates: start: 19950101
  6. CENTRUM [Concomitant]
  7. MULTI-VITAMIN [Concomitant]

REACTIONS (5)
  - CHILLS [None]
  - PROTHROMBIN LEVEL DECREASED [None]
  - TREMOR [None]
  - VIRAL INFECTION [None]
  - VOMITING [None]
